FAERS Safety Report 5894849-6 (Version None)
Quarter: 2008Q3

REPORT INFORMATION
  Report Type: 
  Country: None (occurrence: None)
  Receive Date: 20080924
  Receipt Date: 20080627
  Transmission Date: 20090109
  Serious: No
  Sender: FDA-Public Use
  Company Number: US-ASTRAZENECA-2008UW12968

PATIENT
  Age: 57 Year
  Sex: Female

DRUGS (4)
  1. SEROQUEL [Suspect]
     Indication: SLEEP DISORDER
     Route: 048
  2. SEROQUEL [Suspect]
     Route: 048
  3. SYNTHROID [Concomitant]
  4. COZAAR [Concomitant]

REACTIONS (4)
  - DIARRHOEA [None]
  - HERPES VIRUS INFECTION [None]
  - MUSCLE TWITCHING [None]
  - TREMOR [None]
